FAERS Safety Report 23423086 (Version 1)
Quarter: 2024Q1

REPORT INFORMATION
  Report Type: Report from Study
  Country: US (occurrence: US)
  Receive Date: 20240119
  Receipt Date: 20240119
  Transmission Date: 20240410
  Serious: Yes (Hospitalization)
  Sender: FDA-Public Use
  Company Number: US-BAUSCH-BL-2024-000667

PATIENT
  Age: 82 Year
  Sex: Female
  Weight: 109.13 kg

DRUGS (15)
  1. XIFAXAN [Suspect]
     Active Substance: RIFAXIMIN
     Indication: Irritable bowel syndrome
     Dosage: COMPLETED 2 WEEKS COURSE (14 DAYS)
     Route: 048
     Dates: start: 202305, end: 2023
  2. XIFAXAN [Suspect]
     Active Substance: RIFAXIMIN
     Route: 048
     Dates: start: 2023
  3. HYDROCHLOROTHIAZIDE\OLMESARTAN MEDOXOMIL [Concomitant]
     Active Substance: HYDROCHLOROTHIAZIDE\OLMESARTAN MEDOXOMIL
     Indication: Product used for unknown indication
     Dosage: 20-12.5 MG
  4. ALCLOMETASONE [Concomitant]
     Active Substance: ALCLOMETASONE
     Indication: Product used for unknown indication
  5. VITAMIN C [Concomitant]
     Active Substance: ASCORBIC ACID
     Indication: Product used for unknown indication
  6. ASCORBIC ACID;ZINC OXIDE [Concomitant]
     Indication: Product used for unknown indication
     Dosage: 90-50 MG
  7. VITAMIN D3 [Concomitant]
     Active Substance: CHOLECALCIFEROL
     Indication: Product used for unknown indication
     Dosage: 400 UNIT
  8. VITAMIN B12 [Concomitant]
     Active Substance: CYANOCOBALAMIN
     Indication: Product used for unknown indication
  9. FLUOCINONIDE [Concomitant]
     Active Substance: FLUOCINONIDE
     Indication: Product used for unknown indication
  10. METHYLPHENIDATE HYDROCHLORIDE [Concomitant]
     Active Substance: METHYLPHENIDATE HYDROCHLORIDE
     Indication: Product used for unknown indication
     Dosage: IN MORNING AND MID DAY AS NEEDED
     Route: 048
  11. MODAFINIL [Concomitant]
     Active Substance: MODAFINIL
     Indication: Product used for unknown indication
  12. MYRBETRIQ [Concomitant]
     Active Substance: MIRABEGRON
     Indication: Product used for unknown indication
  13. ROSUVASTATIN [Concomitant]
     Active Substance: ROSUVASTATIN
     Indication: Product used for unknown indication
  14. PAXLOVID [Concomitant]
     Active Substance: NIRMATRELVIR\RITONAVIR
     Indication: Product used for unknown indication
     Dosage: 300 MG (150 MG X 2)-100 MG AS DIRECTED
  15. HYDROCHLOROTHIAZIDE [Concomitant]
     Active Substance: HYDROCHLOROTHIAZIDE
     Indication: Product used for unknown indication

REACTIONS (27)
  - Irritable bowel syndrome [Unknown]
  - Disease recurrence [Unknown]
  - Blood sodium decreased [Recovered/Resolved]
  - Asthenia [Unknown]
  - Infection [Unknown]
  - Joint swelling [Unknown]
  - Fatigue [Unknown]
  - Weight increased [Unknown]
  - Sinus disorder [Unknown]
  - Temperature intolerance [Unknown]
  - Vision blurred [Unknown]
  - Pollakiuria [Unknown]
  - Incontinence [Unknown]
  - Decreased appetite [Unknown]
  - Anaemia [Unknown]
  - Increased tendency to bruise [Unknown]
  - Pruritus [Unknown]
  - Rash [Unknown]
  - Arthralgia [Unknown]
  - Myalgia [Unknown]
  - Confusional state [Unknown]
  - Hypoaesthesia [Unknown]
  - Anxiety [Unknown]
  - Cough [Unknown]
  - Sleep apnoea syndrome [Unknown]
  - Eructation [Unknown]
  - Abdominal distension [Unknown]

NARRATIVE: CASE EVENT DATE: 20231001
